FAERS Safety Report 15457133 (Version 1)
Quarter: 2018Q4

REPORT INFORMATION
  Report Type: Spontaneous
  Country: FR (occurrence: FR)
  Receive Date: 20181002
  Receipt Date: 20181002
  Transmission Date: 20190204
  Serious: Yes (Hospitalization)
  Sender: FDA-Public Use
  Company Number: FR-MYLANLABS-2018M1071659

PATIENT

DRUGS (1)
  1. IMATINIB. [Suspect]
     Active Substance: IMATINIB MESYLATE
     Indication: CHRONIC MYELOID LEUKAEMIA
     Dosage: UNK
     Route: 065

REACTIONS (5)
  - Salivary hypersecretion [Unknown]
  - Tremor [Unknown]
  - Loss of consciousness [Unknown]
  - Dizziness [Unknown]
  - Amnesia [Unknown]

NARRATIVE: CASE EVENT DATE: 20140827
